FAERS Safety Report 18413831 (Version 2)
Quarter: 2020Q4

REPORT INFORMATION
  Report Type: Spontaneous
  Country: SG (occurrence: SG)
  Receive Date: 20201022
  Receipt Date: 20201222
  Transmission Date: 20210114
  Serious: Yes (Life-Threatening, Hospitalization, Other)
  Sender: FDA-Public Use
  Company Number: SG-MACLEODS PHARMACEUTICALS US LTD-MAC2020028696

PATIENT

DRUGS (1)
  1. AMLODIPINE [Suspect]
     Active Substance: AMLODIPINE BESYLATE
     Indication: EMOTIONAL DISTRESS
     Dosage: 30 DOSAGE FORM, SINGLE TOTAL
     Route: 048

REACTIONS (13)
  - Toxicity to various agents [Recovered/Resolved]
  - Staphylococcal infection [Recovered/Resolved]
  - Sinus bradycardia [Recovered/Resolved]
  - Hypotension [Recovered/Resolved]
  - Blood creatinine increased [Recovered/Resolved]
  - Pneumonia klebsiella [Recovered/Resolved]
  - Intentional overdose [Recovered/Resolved]
  - Phlebitis [Recovered/Resolved]
  - Sepsis [Recovered/Resolved]
  - Syncope [Recovered/Resolved]
  - Pneumonia staphylococcal [Recovered/Resolved]
  - Metabolic acidosis [Recovered/Resolved]
  - Wrong product administered [Recovered/Resolved]
